FAERS Safety Report 8910499 (Version 2)
Quarter: 2012Q4

REPORT INFORMATION
  Report Type: 
  Country: BR (occurrence: BR)
  Receive Date: 20121115
  Receipt Date: 20121225
  Transmission Date: 20130627
  Serious: Yes (Other)
  Sender: FDA-Public Use
  Company Number: BR-AMGEN-BRASP2012072438

PATIENT
  Age: 52 Year
  Sex: Female
  Weight: 69 kg

DRUGS (8)
  1. ENBREL [Suspect]
     Indication: RHEUMATOID ARTHRITIS
     Dosage: 50 mg, once weekly
     Route: 058
     Dates: start: 201208
  2. METHOTREXATE [Concomitant]
     Dosage: 15 mg (6 tablets of 2.5mg each one,) 1x/week
  3. CYCLOBENZAPRINE HYDROCHLORIDE [Concomitant]
     Dosage: 1 tablet (10 mg), 1x/day
  4. RIVOTRIL [Concomitant]
     Dosage: 16 drops
  5. DORFLEX [Concomitant]
     Dosage: 30 drops or 1 tablet when feeling pain (as needed)
  6. FLUOXETINE [Concomitant]
     Dosage: ^2 tablets (20mg each)^ , UNK
  7. OMEPRAZOL                          /00661201/ [Concomitant]
     Dosage: UNK
  8. AAS [Concomitant]
     Dosage: unspecified dose, 1 tablet after lunch

REACTIONS (2)
  - Loss of consciousness [Not Recovered/Not Resolved]
  - Syncope [Not Recovered/Not Resolved]
